FAERS Safety Report 9045458 (Version 1)
Quarter: 2013Q1

REPORT INFORMATION
  Report Type: Report from Study
  Country: US (occurrence: US)
  Receive Date: 20130131
  Receipt Date: 20130131
  Transmission Date: 20140127
  Serious: No
  Sender: FDA-Public Use
  Company Number: US-ABBOTT-12P-163-1000533-00

PATIENT
  Age: 60 Year
  Sex: Female

DRUGS (17)
  1. HUMIRA [Suspect]
     Indication: RHEUMATOID ARTHRITIS
     Dates: start: 20120811
  2. METFORMIN [Concomitant]
     Indication: DIABETES MELLITUS
  3. GLIPIZIDE [Concomitant]
     Indication: DIABETES MELLITUS
  4. POTASSIUM CHLORIDE [Concomitant]
     Indication: PRODUCT USED FOR UNKNOWN INDICATION
  5. METHOTREXATE [Concomitant]
     Indication: RHEUMATOID ARTHRITIS
     Dosage: 8 TABLETS 1 TIME A WEEK
  6. PERCOCET [Concomitant]
     Indication: RHEUMATOID ARTHRITIS
     Dosage: 5/325MG 1 FOUR TIMES DAILY AS NEEDED
  7. HYDROCHLOROTHIAZIDE [Concomitant]
     Indication: SWELLING
     Dosage: 25MG DAILY
  8. FOSAMAX [Concomitant]
     Indication: OSTEOPOROSIS
     Dosage: 70MG WEEKLY
  9. OMEPRAZOLE [Concomitant]
     Indication: GASTROOESOPHAGEAL REFLUX DISEASE
     Dosage: 40MG DAILY
  10. NABUMETONE [Concomitant]
     Indication: RHEUMATOID ARTHRITIS
     Dosage: 750MG DAILY
  11. ADALAT [Concomitant]
     Indication: BLOOD PRESSURE
     Dosage: 30MG DAILY
  12. LASIX [Concomitant]
     Indication: OEDEMA
     Dosage: 20MG DAILY
  13. CELEXA [Concomitant]
     Indication: NERVOUSNESS
     Dosage: 40MG DAILY
  14. NEURONTIN [Concomitant]
     Indication: RHEUMATOID ARTHRITIS
  15. PREDNISONE [Concomitant]
     Indication: RHEUMATOID ARTHRITIS
     Dosage: 10MG 1/2 TABLET DAILY
  16. OXYBUTYNIN [Concomitant]
     Indication: URINARY INCONTINENCE
     Dosage: 5MG DAILY
  17. CALCIUM [Concomitant]
     Indication: PRODUCT USED FOR UNKNOWN INDICATION
     Dosage: 1 DAILY

REACTIONS (1)
  - Cough [Not Recovered/Not Resolved]
